FAERS Safety Report 6110739-8 (Version None)
Quarter: 2009Q1

REPORT INFORMATION
  Report Type: 
  Country: None (occurrence: None)
  Receive Date: 20090309
  Receipt Date: 20090224
  Transmission Date: 20090719
  Serious: No
  Sender: FDA-Public Use
  Company Number: DSU-2009-00484

PATIENT
  Age: 57 Year
  Sex: Female
  Weight: 58.9676 kg

DRUGS (7)
  1. WELCHOL [Suspect]
     Indication: GASTROINTESTINAL DISORDER
     Dosage: 1250 MG (1250 MG, QHS), PER ORAL, 625 MG (625 MG, QHS), PER ORAL
     Route: 048
     Dates: start: 20090201, end: 20090201
  2. WELCHOL [Suspect]
     Indication: GASTROINTESTINAL DISORDER
     Dosage: 1250 MG (1250 MG, QHS), PER ORAL, 625 MG (625 MG, QHS), PER ORAL
     Route: 048
     Dates: start: 20090201
  3. DICYCLOMINE [Concomitant]
  4. ENBREL [Concomitant]
  5. DICLOFENAC (DICLOFENAC) [Concomitant]
  6. ACTONEL [Concomitant]
  7. ASACOL (MESALAZINE) (MESALAZINE) [Concomitant]

REACTIONS (5)
  - DYSPHAGIA [None]
  - FEELING ABNORMAL [None]
  - INAPPROPRIATE SCHEDULE OF DRUG ADMINISTRATION [None]
  - PRODUCT QUALITY ISSUE [None]
  - TREATMENT NONCOMPLIANCE [None]
